FAERS Safety Report 10207351 (Version 1)
Quarter: 2014Q2

REPORT INFORMATION
  Report Type: Spontaneous
  Country: US (occurrence: US)
  Receive Date: 20140530
  Receipt Date: 20140530
  Transmission Date: 20141212
  Serious: No
  Sender: FDA-Public Use
  Company Number: US-GLAXOSMITHKLINE-A1036468A

PATIENT
  Age: 70 Year
  Sex: Male

DRUGS (7)
  1. VENTOLIN [Suspect]
     Indication: CHRONIC OBSTRUCTIVE PULMONARY DISEASE
     Dosage: 2PUFF SIX TIMES PER DAY
     Route: 055
     Dates: start: 201301
  2. CYMBALTA [Suspect]
     Dates: end: 201307
  3. NO CONCURRENT MEDICATION [Concomitant]
  4. BLOOD PRESSURE MEDICATION [Concomitant]
  5. BABY ASPIRIN [Concomitant]
  6. AMOXICILLIN [Concomitant]
  7. TYLENOL [Concomitant]
     Indication: BACK PAIN

REACTIONS (9)
  - Abdominal pain [Not Recovered/Not Resolved]
  - Pain in extremity [Unknown]
  - Back pain [Unknown]
  - Throat tightness [Unknown]
  - Choking sensation [Unknown]
  - Sinus congestion [Unknown]
  - Insomnia [Unknown]
  - Dyspnoea [Unknown]
  - Pruritus [Unknown]
